FAERS Safety Report 10023753 (Version 1)
Quarter: 2014Q1

REPORT INFORMATION
  Report Type: Spontaneous
  Country: US (occurrence: US)
  Receive Date: 20140320
  Receipt Date: 20140320
  Transmission Date: 20141002
  Serious: Yes (Hospitalization)
  Sender: FDA-Public Use
  Company Number: US-BAYER-2014-041120

PATIENT
  Age: 22 Year
  Sex: Female
  Weight: 90.7 kg

DRUGS (3)
  1. YASMIN [Suspect]
  2. CYCLOBENZAPRINE [Concomitant]
     Indication: MUSCLE RELAXANT THERAPY
     Dosage: 10 MG, UNK
  3. ETODOLAC [Concomitant]
     Indication: PAIN
     Dosage: 400 MG, UNK

REACTIONS (1)
  - Pulmonary embolism [None]
